FAERS Safety Report 24594898 (Version 1)
Quarter: 2024Q4

REPORT INFORMATION
  Report Type: Spontaneous
  Country: US (occurrence: US)
  Receive Date: 20241108
  Receipt Date: 20241108
  Transmission Date: 20250115
  Serious: No
  Sender: GE HEALTHCARE
  Company Number: US-GE HEALTHCARE-2024CSU009411

PATIENT

DRUGS (8)
  1. VIZAMYL [Suspect]
     Active Substance: FLUTEMETAMOL F-18
     Indication: Positron emission tomogram
     Dosage: 192.77 MBQ(5.21 MCI), TOTAL
     Route: 065
     Dates: start: 20240815, end: 20240815
  2. TAMSULOSIN [Concomitant]
     Active Substance: TAMSULOSIN
     Dosage: UNK, TOTAL
     Route: 065
  3. FLUTICASONE [Concomitant]
     Active Substance: FLUTICASONE
     Route: 045
  4. HYDROCORTISONE [Concomitant]
     Active Substance: HYDROCORTISONE
     Route: 065
  5. SILDENAFIL [Concomitant]
     Active Substance: SILDENAFIL
     Route: 065
  6. DIVALPROEX SODIUM [Concomitant]
     Active Substance: DIVALPROEX SODIUM
     Route: 065
  7. RIZATRIPTAN [Concomitant]
     Active Substance: RIZATRIPTAN
     Route: 065
  8. DULOXETINE [Concomitant]
     Active Substance: DULOXETINE
     Dosage: UNK
     Route: 065

REACTIONS (2)
  - Flushing [Recovered/Resolved]
  - Blood pressure increased [Recovered/Resolved]

NARRATIVE: CASE EVENT DATE: 20240815
